FAERS Safety Report 7125845-9 (Version None)
Quarter: 2010Q4

REPORT INFORMATION
  Report Type: 
  Country: None (occurrence: None)
  Receive Date: 20101129
  Receipt Date: 20101112
  Transmission Date: 20110411
  Serious: Yes (Other)
  Sender: FDA-Public Use
  Company Number: US-ROCHE-742087

PATIENT
  Sex: Female

DRUGS (7)
  1. AVASTIN [Suspect]
     Route: 042
     Dates: start: 20090101
  2. XELODA [Suspect]
     Route: 065
  3. CETUXIMAB [Suspect]
     Route: 065
  4. FOLINIC ACID [Suspect]
     Route: 065
     Dates: start: 20090101
  5. FLUOROURACIL [Suspect]
     Route: 065
     Dates: start: 20090101
  6. OXALIPLATIN [Suspect]
     Route: 065
     Dates: start: 20090101
  7. IRINOTECAN HCL [Suspect]
     Route: 065

REACTIONS (1)
  - ANAPHYLACTOID REACTION [None]
